FAERS Safety Report 9880128 (Version 1)
Quarter: 2014Q1

REPORT INFORMATION
  Report Type: Spontaneous
  Country: US (occurrence: US)
  Receive Date: 20140207
  Receipt Date: 20140207
  Transmission Date: 20141002
  Serious: No
  Sender: FDA-Public Use
  Company Number: US-009507513-1402USA000163

PATIENT
  Age: 63 Year
  Sex: Female

DRUGS (3)
  1. COZAAR [Suspect]
     Indication: BLOOD CHOLESTEROL INCREASED
     Dosage: 25 MG, UNK
     Route: 048
  2. COZAAR [Suspect]
     Dosage: 50 MG, UNK
     Route: 048
     Dates: start: 201309
  3. COZAAR [Suspect]
     Dosage: 100 MG, UNK
     Route: 048

REACTIONS (12)
  - Bronchial disorder [Not Recovered/Not Resolved]
  - Drug ineffective [Unknown]
  - Upper respiratory tract infection [Not Recovered/Not Resolved]
  - Dyspnoea [Not Recovered/Not Resolved]
  - Palpitations [Unknown]
  - Anxiety [Unknown]
  - Weight increased [Unknown]
  - Anosmia [Not Recovered/Not Resolved]
  - Ageusia [Not Recovered/Not Resolved]
  - Local swelling [Unknown]
  - Sinus disorder [Unknown]
  - Left ventricular hypertrophy [Unknown]
